FAERS Safety Report 13754853 (Version 2)
Quarter: 2023Q1

REPORT INFORMATION
  Report Type: Spontaneous
  Country: BY (occurrence: BY)
  Receive Date: 20170714
  Receipt Date: 20230331
  Transmission Date: 20230417
  Serious: Yes (Other)
  Sender: FDA-Public Use
  Company Number: BY-ASTELLAS-2017US027750

PATIENT
  Sex: Male
  Weight: 3.03 kg

DRUGS (2)
  1. TACROLIMUS [Suspect]
     Active Substance: TACROLIMUS
     Indication: Renal and liver transplant
     Route: 064
  2. TACROLIMUS [Suspect]
     Active Substance: TACROLIMUS
     Route: 064

REACTIONS (3)
  - Pyelocaliectasis [Unknown]
  - Renal disorder [Unknown]
  - Foetal exposure during pregnancy [Unknown]
